FAERS Safety Report 6063122-8 (Version None)
Quarter: 2009Q1

REPORT INFORMATION
  Report Type: 
  Country: None (occurrence: None)
  Receive Date: 20090203
  Receipt Date: 20090119
  Transmission Date: 20090719
  Serious: Yes (Death, Hospitalization)
  Sender: FDA-Public Use
  Company Number: FR-PFIZER INC-2009157571

PATIENT

DRUGS (12)
  1. MARAVIROC [Suspect]
     Indication: HIV INFECTION
     Dosage: UNK
     Dates: start: 20080618
  2. TENOFOVIR DISOPROXIL FUMARATE [Concomitant]
     Route: 048
     Dates: start: 20080618
  3. DARUNAVIR [Concomitant]
     Route: 048
     Dates: start: 20080618
  4. RITONAVIR [Concomitant]
     Route: 048
     Dates: start: 20080618
  5. ROSUVASTATIN [Concomitant]
     Route: 048
     Dates: start: 20040902
  6. GALENIC /FLUTICASONE/SALMETEROL/ [Concomitant]
     Route: 048
     Dates: start: 20060201
  7. SALBUTAMOL SULFATE [Concomitant]
     Route: 048
     Dates: start: 20070221
  8. LANSOPRAZOLE [Concomitant]
     Route: 048
     Dates: start: 19970521
  9. ACETYLSALICYLATE LYSINE [Concomitant]
     Route: 048
     Dates: start: 20080905
  10. BROMAZEPAM [Concomitant]
     Route: 048
     Dates: start: 20080409
  11. BAMBUTEROL HYDROCHLORIDE [Concomitant]
     Route: 048
     Dates: start: 20080409
  12. LEVOCETIRIZINE DIHYDROCHLORIDE [Concomitant]
     Route: 048
     Dates: start: 20080409

REACTIONS (2)
  - CARDIAC FAILURE [None]
  - MYOCARDIAL INFARCTION [None]
